FAERS Safety Report 18723046 (Version 2)
Quarter: 2021Q1

REPORT INFORMATION
  Report Type: Spontaneous
  Country: ES (occurrence: ES)
  Receive Date: 20210111
  Receipt Date: 20210125
  Transmission Date: 20210419
  Serious: Yes (Other)
  Sender: FDA-Public Use
  Company Number: ES-SUN PHARMACEUTICAL INDUSTRIES LTD-2019RR-222008

PATIENT
  Age: 32 Year
  Sex: Female

DRUGS (2)
  1. LEVETIRACETAM CINFA EFG [Suspect]
     Active Substance: LEVETIRACETAM
     Dosage: INCREASING EVERY 2 WEEKS UP TO 500 MG/12 HOURS. THE LEVETIRACETAM GIVEN AS 500 MG/12 HOURS (INITI...
     Route: 042
     Dates: start: 2017, end: 2017
  2. LEVETIRACETAM CINFA EFG [Suspect]
     Active Substance: LEVETIRACETAM
     Indication: PARTIAL SEIZURES
     Dosage: 1000 MILLIGRAM, DAILY, IV AND ORALLY
     Route: 065
     Dates: start: 2017, end: 2017

REACTIONS (3)
  - Delirium [Recovered/Resolved]
  - Hallucination, visual [Recovered/Resolved]
  - Substance-induced psychotic disorder [Recovered/Resolved]

NARRATIVE: CASE EVENT DATE: 20170721
